FAERS Safety Report 6295324-X (Version None)
Quarter: 2009Q3

REPORT INFORMATION
  Report Type: 
  Country: None (occurrence: None)
  Receive Date: 20090729
  Receipt Date: 20090723
  Transmission Date: 20100115
  Serious: Yes (Other)
  Sender: FDA-Public Use
  Company Number: GXKR2009DE04355

PATIENT
  Sex: Male
  Weight: 90 kg

DRUGS (1)
  1. TRAMADOL HEXAL (NGX) (TRAMADOL) UNKNOWN [Suspect]
     Indication: PAIN
     Dosage: 20X3;
     Dates: start: 20090323

REACTIONS (3)
  - ERYTHEMA [None]
  - OEDEMA [None]
  - URTICARIA [None]
